FAERS Safety Report 6653506-9 (Version None)
Quarter: 2010Q1

REPORT INFORMATION
  Report Type: 
  Country: None (occurrence: None)
  Receive Date: 20100326
  Receipt Date: 20100111
  Transmission Date: 20100710
  Serious: Yes (Disabling)
  Sender: FDA-Public Use
  Company Number: GB-TEVA-228518ISR

PATIENT
  Sex: Male

DRUGS (10)
  1. PREDNISOLONE [Suspect]
     Indication: PROSTATE CANCER
     Route: 048
     Dates: start: 20081202
  2. ABIRATERONE ACETATE OR PLACEBO [Suspect]
     Route: 048
     Dates: start: 20081202, end: 20090616
  3. PARACETAMOL [Concomitant]
     Indication: BACK PAIN
     Route: 048
     Dates: start: 20081225
  4. AMLODIPINE [Concomitant]
     Indication: HYPERTENSION
     Route: 048
     Dates: start: 19981201
  5. DOXAZOSIN [Concomitant]
     Indication: PROPHYLAXIS
     Route: 048
     Dates: start: 19981201
  6. BENDROFLUMETHIAZIDE [Concomitant]
     Indication: HYPERTENSION
     Route: 048
     Dates: start: 19981201
  7. GOSERELIN [Concomitant]
     Route: 058
     Dates: start: 20081202
  8. LACRI-LUBE [Concomitant]
     Indication: LACRIMATION INCREASED
     Dates: start: 20090602
  9. LACRI-LUBE [Concomitant]
     Indication: NASAL CONGESTION
  10. MOMETASONE FUROATE [Concomitant]
     Indication: NASAL CONGESTION
     Route: 045
     Dates: start: 20090602

REACTIONS (1)
  - FATIGUE [None]
